FAERS Safety Report 25857119 (Version 2)
Quarter: 2025Q4

REPORT INFORMATION
  Report Type: Spontaneous
  Country: US (occurrence: US)
  Receive Date: 20250929
  Receipt Date: 20251003
  Transmission Date: 20260118
  Serious: No
  Sender: ABBVIE
  Company Number: US-ABBVIE-6473927

PATIENT
  Weight: 57 kg

DRUGS (2)
  1. BOTOX COSMETIC [Suspect]
     Active Substance: ONABOTULINUMTOXINA
     Indication: Skin cosmetic procedure
     Dosage: TIME INTERVAL: AS NECESSARY: FREQUENCY TEXT: EVERY 6 TO 12 MONTHS,  START DATE TEXT: 4 TO 5 YEARS
     Route: 030
     Dates: start: 2018, end: 2018
  2. BOTOX COSMETIC [Suspect]
     Active Substance: ONABOTULINUMTOXINA
     Indication: Skin cosmetic procedure
     Dosage: TIME INTERVAL: AS NECESSARY: FREQUENCY TEXT: EVERY 6 TO 12 MONTHS,  START DATE TEXT: 4 TO 5 YEARS
     Route: 030
     Dates: start: 2018, end: 2018

REACTIONS (3)
  - Product packaging quantity issue [Unknown]
  - Product physical issue [Not Recovered/Not Resolved]
  - Drug ineffective [Not Recovered/Not Resolved]

NARRATIVE: CASE EVENT DATE: 20250801
